FAERS Safety Report 5332782-9 (Version None)
Quarter: 2007Q2

REPORT INFORMATION
  Report Type: 
  Country: None (occurrence: None)
  Receive Date: 20070518
  Receipt Date: 20070507
  Transmission Date: 20071010
  Serious: Yes (Other)
  Sender: FDA-Public Use
  Company Number: 16452

PATIENT
  Age: 23 Year
  Sex: Male

DRUGS (5)
  1. DACARBAZINE [Suspect]
     Indication: HODGKIN'S DISEASE NODULAR SCLEROSIS STAGE UNSPECIFIED
  2. VINBLASTINE SULFATE [Suspect]
     Indication: HODGKIN'S DISEASE NODULAR SCLEROSIS STAGE UNSPECIFIED
  3. ADRIAMYCIN PFS [Suspect]
     Indication: HODGKIN'S DISEASE NODULAR SCLEROSIS STAGE UNSPECIFIED
  4. BLEOMYCIN [Suspect]
     Indication: HODGKIN'S DISEASE NODULAR SCLEROSIS STAGE UNSPECIFIED
  5. NEUPOGEN [Suspect]
     Indication: PROPHYLAXIS

REACTIONS (2)
  - LICHENOID KERATOSIS [None]
  - RASH PAPULAR [None]
